FAERS Safety Report 8353866 (Version 6)
Quarter: 2012Q4

REPORT INFORMATION
  Report Type: Report from Study
  Country: JP (occurrence: JP)
  Receive Date: 20120125
  Receipt Date: 20120917
  Transmission Date: 20130627
  Serious: Yes (Hospitalization)
  Sender: FDA-Public Use
  Company Number: JP-ROCHE-1014756

PATIENT
  Age: 41 Year
  Sex: Male
  Weight: 75 kg

DRUGS (7)
  1. PEGASYS [Suspect]
     Indication: HEPATITIS C
     Route: 058
     Dates: start: 20110722, end: 20111028
  2. COPEGUS [Suspect]
     Indication: HEPATITIS C
     Route: 048
     Dates: start: 20110722, end: 20111104
  3. BI 201335 [Suspect]
     Indication: HEPATITIS C
  4. POLARAMINE [Concomitant]
     Route: 048
     Dates: start: 20110902
  5. ALLEGRA [Concomitant]
     Route: 048
     Dates: start: 20110909
  6. PREDNISOLON [Concomitant]
     Indication: EOSINOPHILIA
     Route: 048
     Dates: start: 20110930, end: 20120113
  7. PREDNISOLON [Concomitant]
     Route: 065
     Dates: start: 20120113, end: 20120127

REACTIONS (1)
  - Histiocytosis haematophagic [Recovered/Resolved]
